FAERS Safety Report 7405309-5 (Version None)
Quarter: 2011Q2

REPORT INFORMATION
  Report Type: 
  Country: None (occurrence: None)
  Receive Date: 20110411
  Receipt Date: 20110330
  Transmission Date: 20111010
  Serious: Yes (Other)
  Sender: FDA-Public Use
  Company Number: PHFR2011GB02261

PATIENT
  Sex: Male

DRUGS (1)
  1. CLOZARIL [Suspect]
     Indication: SCHIZOPHRENIA
     Dosage: 350 MG NOCTE
     Route: 048
     Dates: start: 20050203

REACTIONS (4)
  - MUSCLE TWITCHING [None]
  - PALPITATIONS [None]
  - SOMNOLENCE [None]
  - ANTIPSYCHOTIC DRUG LEVEL INCREASED [None]
